FAERS Safety Report 5460624-X (Version None)
Quarter: 2007Q3

REPORT INFORMATION
  Report Type: 
  Country: None (occurrence: None)
  Receive Date: 20070918
  Receipt Date: 20070905
  Transmission Date: 20080115
  Serious: Yes (Other)
  Sender: FDA-Public Use
  Company Number: 2004S1000242

PATIENT
  Age: 32 Year
  Sex: Female

DRUGS (9)
  1. ACITRETIN [Suspect]
     Indication: PSORIASIS
     Dosage: 25 MG; QD; PO, 10 MG; QD; PO
     Route: 048
     Dates: start: 20030523, end: 20031101
  2. ACITRETIN [Suspect]
     Indication: PSORIASIS
     Dosage: 25 MG; QD; PO, 10 MG; QD; PO
     Route: 048
     Dates: start: 20031101, end: 20040607
  3. NOCTRAN 10 [Concomitant]
  4. TEMESTA /00273201/ [Concomitant]
  5. ATARAX /00058401/ [Concomitant]
  6. TERCIAN /00759301/ [Concomitant]
  7. MINIDRIL [Concomitant]
  8. TRICILEST [Concomitant]
  9. EFFEXOR [Concomitant]

REACTIONS (1)
  - MENINGOCELE [None]
